FAERS Safety Report 5747965-3 (Version None)
Quarter: 2008Q2

REPORT INFORMATION
  Report Type: 
  Country: None (occurrence: None)
  Receive Date: 20080523
  Receipt Date: 20080514
  Transmission Date: 20081010
  Serious: Yes (Hospitalization)
  Sender: FDA-Public Use
  Company Number: CH-ROCHE-564700

PATIENT
  Sex: Female

DRUGS (4)
  1. XELODA [Suspect]
     Route: 048
     Dates: start: 20080325, end: 20080411
  2. ISOPTIN [Concomitant]
     Route: 048
  3. ROCALTROL [Concomitant]
     Route: 048
  4. ESCITALOPRAM [Concomitant]
     Route: 048

REACTIONS (1)
  - PERITONITIS [None]
